FAERS Safety Report 9530879 (Version 1)
Quarter: 2013Q3

REPORT INFORMATION
  Report Type: Report from Study
  Country: GB (occurrence: GB)
  Receive Date: 20130918
  Receipt Date: 20130918
  Transmission Date: 20140515
  Serious: Yes (Life-Threatening, Hospitalization)
  Sender: FDA-Public Use
  Company Number: GB-ROCHE-1274808

PATIENT
  Age: 89 Year
  Sex: Male

DRUGS (9)
  1. RANIBIZUMAB [Suspect]
     Indication: AGE-RELATED MACULAR DEGENERATION
     Route: 050
     Dates: start: 20080501
  2. RANIBIZUMAB [Suspect]
     Route: 050
     Dates: start: 20120422
  3. RANIBIZUMAB [Suspect]
     Route: 050
     Dates: start: 20120810, end: 20120810
  4. FINASTERIDE [Concomitant]
     Route: 065
     Dates: start: 20110301
  5. FINASTERIDE [Concomitant]
     Route: 065
     Dates: start: 20120508
  6. INDAPAMIDE [Concomitant]
     Route: 065
     Dates: start: 20110501
  7. INDAPAMIDE [Concomitant]
     Route: 065
     Dates: start: 20120508
  8. SALBUTAMOL [Concomitant]
     Route: 065
     Dates: start: 20070221
  9. SALBUTAMOL [Concomitant]
     Route: 065
     Dates: start: 20120508

REACTIONS (5)
  - Bladder transitional cell carcinoma [Unknown]
  - Metastases to bone [Unknown]
  - Chest pain [Unknown]
  - Fibrin D dimer increased [Unknown]
  - Hypoxia [Unknown]
